FAERS Safety Report 9780252 (Version 1)
Quarter: 2013Q4

REPORT INFORMATION
  Report Type: Spontaneous
  Country: JP (occurrence: JP)
  Receive Date: 20131223
  Receipt Date: 20131223
  Transmission Date: 20140711
  Serious: Yes (Other)
  Sender: FDA-Public Use
  Company Number: JP-BRISTOL-MYERS SQUIBB COMPANY-19930643

PATIENT
  Age: 74 Year
  Sex: Male

DRUGS (5)
  1. METGLUCO [Suspect]
     Indication: DIABETES MELLITUS
     Route: 048
  2. AMARYL [Concomitant]
     Route: 048
  3. ACTOS [Concomitant]
     Route: 048
  4. SITAGLIPTIN PHOSPHATE [Concomitant]
     Route: 048
  5. BLOPRESS [Concomitant]
     Route: 048

REACTIONS (2)
  - Eosinophilic pneumonia acute [Recovered/Resolved]
  - Rash [Recovered/Resolved]
